FAERS Safety Report 8578905-X (Version None)
Quarter: 2012Q3

REPORT INFORMATION
  Report Type: 
  Country: None (occurrence: None)
  Receive Date: 20120808
  Receipt Date: 20120731
  Transmission Date: 20120928
  Serious: Yes (Other)
  Sender: FDA-Public Use
  Company Number: US-VERTEX PHARMACEUTICALS INC.-AE-2012-010378

PATIENT
  Age: 51 Year
  Sex: Male

DRUGS (5)
  1. TRUVADA [Concomitant]
     Indication: HIV INFECTION
  2. RIBAVIRIN [Concomitant]
     Indication: HEPATITIS C
     Dates: start: 20120608, end: 20120712
  3. ISENTRESS [Concomitant]
     Indication: HIV INFECTION
  4. INCIVEK [Suspect]
     Indication: HEPATITIS C
     Route: 048
     Dates: start: 20120608, end: 20120712
  5. PEGINTERFERON ALFA-2A [Concomitant]
     Indication: HEPATITIS C
     Dates: start: 20120608, end: 20120712

REACTIONS (4)
  - OFF LABEL USE [None]
  - CD4 LYMPHOCYTES DECREASED [None]
  - DRUG DOSE OMISSION [None]
  - BLOOD BILIRUBIN INCREASED [None]
